FAERS Safety Report 4538290-7 (Version None)
Quarter: 2004Q4

REPORT INFORMATION
  Report Type: 
  Country: None (occurrence: None)
  Receive Date: 20041223
  Receipt Date: 20041223
  Transmission Date: 20050328
  Serious: Yes (Disabling)
  Sender: FDA-Public Use
  Company Number: None

PATIENT
  Age: 26 Year
  Sex: Female
  Weight: 63.5036 kg

DRUGS (2)
  1. DEPO-PROVERA [Suspect]
     Indication: CONTRACEPTION
     Dates: start: 20031201
  2. DEPO-PROVERA [Suspect]
     Indication: CONTRACEPTION
     Dates: start: 20040301

REACTIONS (7)
  - AMENORRHOEA [None]
  - ATROPHIC VULVOVAGINITIS [None]
  - DEPRESSION [None]
  - DYSPAREUNIA [None]
  - VAGINAL PAIN [None]
  - VULVITIS [None]
  - VULVOVAGINAL DISCOMFORT [None]
